FAERS Safety Report 6300367-3 (Version None)
Quarter: 2009Q3

REPORT INFORMATION
  Report Type: 
  Country: None (occurrence: None)
  Receive Date: 20090806
  Receipt Date: 20090728
  Transmission Date: 20100115
  Serious: Yes (Hospitalization, Disabling)
  Sender: FDA-Public Use
  Company Number: DE-ABBOTT-09P-062-0588140-00

PATIENT
  Age: 74 Year
  Sex: Female

DRUGS (2)
  1. HUMIRA [Suspect]
     Indication: RHEUMATOID ARTHRITIS
     Dates: start: 20040401
  2. MTX [Concomitant]
     Indication: RHEUMATOID ARTHRITIS
     Dates: end: 20080701

REACTIONS (2)
  - JOINT ARTHROPLASTY [None]
  - SHOULDER ARTHROPLASTY [None]
